FAERS Safety Report 7491403-X (Version None)
Quarter: 2011Q2

REPORT INFORMATION
  Report Type: 
  Country: None (occurrence: None)
  Receive Date: 20110519
  Receipt Date: 20110506
  Transmission Date: 20111010
  Serious: Yes (Disabling, Other)
  Sender: FDA-Public Use
  Company Number: PHHY2010US53493

PATIENT
  Sex: Female
  Weight: 67.12 kg

DRUGS (27)
  1. OXYCONTIN [Concomitant]
     Dosage: 60 MG, BID
  2. ZOFRAN [Concomitant]
     Dosage: 8 MG, UNK
  3. VELCADE [Concomitant]
     Dosage: ABOUT 10 CYCLES
     Dates: start: 20091201
  4. PULMICORT [Concomitant]
     Dosage: 90 UG, UNK
  5. ZOMETA [Suspect]
     Indication: MULTIPLE MYELOMA
     Dosage: 4 MG, QMO
     Dates: start: 20100510, end: 20100729
  6. AUGMENTIN [Concomitant]
     Dosage: 875 MG, UNK
  7. NORCO [Concomitant]
     Dosage: 10-325 MG TAB
  8. ACYCLOVIR [Concomitant]
     Dosage: 400 MG, UNK
  9. AMBIEN [Concomitant]
     Dosage: 10 MG, UNK
  10. ESTRACE [Concomitant]
     Dosage: 0.01 %, UNK
  11. FISH OIL [Concomitant]
     Dosage: 1000 MG, UNK
  12. LOPERAMIDE [Concomitant]
     Dosage: 2 MG, UNK
  13. COLCHICINE [Concomitant]
     Dosage: 0.6 MG, UNK
  14. OMEPRAZOLE [Concomitant]
     Dosage: 20 MG, UNK
  15. ZOLOFT [Concomitant]
     Dosage: 100 MG, UNK
  16. ARIXTRA [Concomitant]
     Dosage: 5 MG/0.4 ML
  17. LABETALOL [Concomitant]
     Dosage: 100 MG, UNK
  18. MULTI-VITAMINS [Concomitant]
     Route: 048
  19. NEUPOGEN [Concomitant]
     Dosage: 480 MCG/0.8ML
  20. POTASSIUM CHLORATE [Concomitant]
     Dosage: 10 MEQ, UNK
  21. REVLIMID [Concomitant]
     Dosage: 10 MG, UNK
     Dates: start: 20070101
  22. DEXAMETHASONE [Concomitant]
     Dosage: 4 MG, UNK
  23. SINGULAIR [Concomitant]
     Dosage: 10 MG, UNK
  24. CELEBREX [Concomitant]
     Dosage: 100 MG, UNK
  25. VALTREX [Concomitant]
     Dosage: 1 G, UNK
  26. DECADRON [Concomitant]
     Dosage: ABOUT 10 CYCLES
     Dates: start: 20070101
  27. LASIX [Concomitant]
     Dosage: 20 MG, UNK

REACTIONS (25)
  - BONE DISORDER [None]
  - BONE LESION [None]
  - ALANINE AMINOTRANSFERASE INCREASED [None]
  - ASPARTATE AMINOTRANSFERASE INCREASED [None]
  - ULCER [None]
  - SINUSITIS [None]
  - NAUSEA [None]
  - FATIGUE [None]
  - OPEN WOUND [None]
  - ORAL DISCOMFORT [None]
  - DIASTOLIC DYSFUNCTION [None]
  - BLOOD ALKALINE PHOSPHATASE INCREASED [None]
  - WHEEZING [None]
  - BLOOD PHOSPHORUS INCREASED [None]
  - DYSPNOEA [None]
  - OSTEONECROSIS OF JAW [None]
  - TONGUE INJURY [None]
  - PAIN [None]
  - EXOSTOSIS [None]
  - HYPOAESTHESIA [None]
  - WHITE BLOOD CELL COUNT INCREASED [None]
  - BLOOD MAGNESIUM INCREASED [None]
  - GINGIVAL PAIN [None]
  - KYPHOSCOLIOSIS [None]
  - BACK PAIN [None]
